FAERS Safety Report 7050256-4 (Version None)
Quarter: 2010Q4

REPORT INFORMATION
  Report Type: 
  Country: None (occurrence: None)
  Receive Date: 20101018
  Receipt Date: 20101007
  Transmission Date: 20110411
  Serious: Yes (Hospitalization)
  Sender: FDA-Public Use
  Company Number: US-MYLANLABS-2010S1018333

PATIENT
  Age: 85 Year
  Sex: Male

DRUGS (9)
  1. IPRATROPIUM BROMIDE AND ALBUTEROL SULFATE [Suspect]
     Indication: BRONCHITIS
     Route: 055
     Dates: start: 20100901, end: 20100909
  2. IPRATROPIUM BROMIDE AND ALBUTEROL SULFATE [Suspect]
     Route: 055
     Dates: start: 20100901, end: 20100909
  3. FLORASTOR [Concomitant]
  4. LASIX [Concomitant]
  5. ADVAIR DISKUS 100/50 [Concomitant]
  6. DETROL LA [Concomitant]
  7. ASPIRIN [Concomitant]
  8. SYNTHROID [Concomitant]
  9. VITAMIN TAB [Concomitant]
     Dosage: PRESSURE VISION

REACTIONS (6)
  - CHEST PAIN [None]
  - DYSPHONIA [None]
  - GLOSSODYNIA [None]
  - HEADACHE [None]
  - ORAL DISCOMFORT [None]
  - THROAT IRRITATION [None]
